FAERS Safety Report 9054823 (Version 1)
Quarter: 2013Q1

REPORT INFORMATION
  Report Type: Report from Study
  Country: CA (occurrence: CA)
  Receive Date: 20130208
  Receipt Date: 20130208
  Transmission Date: 20140127
  Serious: Yes (Hospitalization)
  Sender: FDA-Public Use
  Company Number: CA-JNJFOC-20130113780

PATIENT
  Age: 58 None
  Sex: Female
  Weight: 54 kg

DRUGS (6)
  1. REMICADE [Suspect]
     Indication: CROHN^S DISEASE
     Route: 042
     Dates: start: 20110921
  2. REMICADE [Suspect]
     Indication: CROHN^S DISEASE
     Route: 042
     Dates: start: 20121128
  3. ANTIBIOTIC UNSPECIFIED [Suspect]
     Indication: CYSTITIS
     Route: 065
  4. IMURAN [Concomitant]
     Indication: PRODUCT USED FOR UNKNOWN INDICATION
     Route: 048
  5. PREDNISONE [Concomitant]
     Indication: PRODUCT USED FOR UNKNOWN INDICATION
     Route: 048
  6. EFFEXOR [Concomitant]
     Route: 065

REACTIONS (6)
  - Transient ischaemic attack [Unknown]
  - Adverse drug reaction [Unknown]
  - Cystitis [Unknown]
  - Blood urine present [Unknown]
  - Blood pressure decreased [Unknown]
  - Dysuria [Unknown]
